FAERS Safety Report 22141162 (Version 15)
Quarter: 2024Q3

REPORT INFORMATION
  Report Type: Spontaneous
  Country: CA (occurrence: CA)
  Receive Date: 20230327
  Receipt Date: 20240806
  Transmission Date: 20241016
  Serious: Yes (Other)
  Sender: PFIZER
  Company Number: CA-PFIZER INC-202201193663

PATIENT
  Age: 63 Year
  Sex: Female
  Weight: 106 kg

DRUGS (14)
  1. RUXIENCE [Suspect]
     Active Substance: RITUXIMAB-PVVR
     Indication: Rheumatoid arthritis
     Dosage: 1000 MG DAY 1 AND DAY 15
     Route: 042
     Dates: start: 20220927
  2. RUXIENCE [Suspect]
     Active Substance: RITUXIMAB-PVVR
     Dosage: 1000 MG DAY 1 AND DAY 15
     Route: 042
     Dates: start: 20221011
  3. RUXIENCE [Suspect]
     Active Substance: RITUXIMAB-PVVR
     Dosage: 1000 MG DAY 1 AND DAY 15 (RETREATMENT)
     Route: 042
     Dates: start: 20230413
  4. RUXIENCE [Suspect]
     Active Substance: RITUXIMAB-PVVR
     Dosage: 1000 MG DAY 1 AND DAY 15 (ON DAY15)
     Route: 042
     Dates: start: 20230428
  5. RUXIENCE [Suspect]
     Active Substance: RITUXIMAB-PVVR
     Dosage: 1000 MG RETREATMENT DAY 1 AND DAY 15
     Route: 042
     Dates: start: 20231116
  6. RUXIENCE [Suspect]
     Active Substance: RITUXIMAB-PVVR
     Dosage: 1000 MG RETREATMENT DAY 1 AND DAY 15 (1000 MG, 18 WEEKS)
     Route: 042
     Dates: start: 20240321
  7. ACETAMINOPHEN [Concomitant]
     Active Substance: ACETAMINOPHEN
     Indication: Premedication
     Dosage: 650 MG
     Route: 048
     Dates: start: 20230413, end: 20230413
  8. ATROVENT [Concomitant]
     Active Substance: IPRATROPIUM BROMIDE
     Dosage: 2 PUFF
  9. DILTIAZEM [Concomitant]
     Active Substance: DILTIAZEM
     Indication: Atrial fibrillation
     Dosage: UNK
  10. DIPHENHYDRAMINE [Concomitant]
     Active Substance: DIPHENHYDRAMINE
     Indication: Premedication
     Dosage: 50 MG
     Route: 048
     Dates: start: 20230413, end: 20230413
  11. GRAVOL [Concomitant]
     Active Substance: DIMENHYDRINATE
     Dosage: 50 MG
     Route: 048
  12. HYDROCORTISONE [Concomitant]
     Active Substance: HYDROCORTISONE\HYDROCORTISONE ACETATE
     Indication: Premedication
     Dosage: 100 MG
     Route: 042
     Dates: start: 20230413, end: 20230413
  13. PREDNISONE [Concomitant]
     Active Substance: PREDNISONE
     Dosage: UNK
  14. VENTOLIN [Concomitant]
     Active Substance: ALBUTEROL SULFATE
     Dosage: 2 PUFF

REACTIONS (17)
  - Pneumonia [Recovering/Resolving]
  - Interstitial lung disease [Recovering/Resolving]
  - Blood pressure decreased [Not Recovered/Not Resolved]
  - Oropharyngeal pain [Recovered/Resolved]
  - Ear pruritus [Recovered/Resolved]
  - Heart rate decreased [Not Recovered/Not Resolved]
  - Malaise [Unknown]
  - Productive cough [Unknown]
  - Chest pain [Unknown]
  - Dyspnoea [Unknown]
  - COVID-19 [Recovering/Resolving]
  - Influenza [Recovered/Resolved]
  - Ear pain [Unknown]
  - Ear infection [Unknown]
  - Condition aggravated [Unknown]
  - Off label use [Unknown]
  - Product use issue [Unknown]

NARRATIVE: CASE EVENT DATE: 20220927
